FAERS Safety Report 4636331-X (Version None)
Quarter: 2005Q2

REPORT INFORMATION
  Report Type: 
  Country: None (occurrence: None)
  Receive Date: 20050415
  Receipt Date: 20041022
  Transmission Date: 20051028
  Serious: No
  Sender: FDA-Public Use
  Company Number: US-BRISTOL-MYERS SQUIBB COMPANY-12742409

PATIENT
  Age: 70 Year
  Sex: Female
  Weight: 71 kg

DRUGS (3)
  1. PARAPLATIN [Suspect]
     Indication: BREAST CANCER
     Dosage: 3 WEEKS (WEEKLY) ON/3 WEEKS OFF
     Route: 042
  2. TYLENOL (CAPLET) [Concomitant]
  3. BENICAR [Concomitant]

REACTIONS (2)
  - DYSPHONIA [None]
  - THROAT TIGHTNESS [None]
